FAERS Safety Report 4339186-6 (Version None)
Quarter: 2004Q2

REPORT INFORMATION
  Report Type: 
  Country: None (occurrence: None)
  Receive Date: 20040415
  Receipt Date: 20040405
  Transmission Date: 20050107
  Serious: Yes (Hospitalization)
  Sender: FDA-Public Use
  Company Number: FR-BRISTOL-MYERS SQUIBB COMPANY-12559977

PATIENT
  Age: 47 Year
  Sex: Male

DRUGS (2)
  1. CYCLOPHOSPHAMIDE [Suspect]
     Indication: NEOPLASM MALIGNANT
     Route: 042
     Dates: start: 20031121, end: 20031121
  2. UROMITEXAN [Suspect]
     Indication: NEOPLASM MALIGNANT
     Route: 042
     Dates: start: 20031121, end: 20031121

REACTIONS (1)
  - CARDIOMYOPATHY [None]
